FAERS Safety Report 12693286 (Version 1)
Quarter: 2016Q3

REPORT INFORMATION
  Report Type: Spontaneous
  Country: US (occurrence: None)
  Receive Date: 20160826
  Receipt Date: 20160826
  Transmission Date: 20161109
  Serious: No
  Sender: FDA-Public Use
  Company Number: None

PATIENT
  Age: 64 Year
  Sex: Male

DRUGS (2)
  1. HARVONI [Suspect]
     Active Substance: LEDIPASVIR\SOFOSBUVIR
     Indication: HEPATITIS C
  2. RIBAVIRIN TAB 200MG [Suspect]
     Active Substance: RIBAVIRIN
     Indication: HEPATITIS C

REACTIONS (4)
  - Palpitations [None]
  - Fatigue [None]
  - Constipation [None]
  - Sleep disorder [None]

NARRATIVE: CASE EVENT DATE: 20160801
